FAERS Safety Report 14243414 (Version 1)
Quarter: 2017Q4

REPORT INFORMATION
  Report Type: Spontaneous
  Country: JP (occurrence: JP)
  Receive Date: 20171201
  Receipt Date: 20171201
  Transmission Date: 20180321
  Serious: Yes (Other)
  Sender: FDA-Public Use
  Company Number: JP-BAYER-2017-229433

PATIENT
  Sex: Female

DRUGS (1)
  1. NEXAVAR [Suspect]
     Active Substance: SORAFENIB
     Dosage: DAILY DOSE 600 MG
     Route: 048

REACTIONS (7)
  - Palmar-plantar erythrodysaesthesia syndrome [Recovered/Resolved]
  - Hypertension [Recovered/Resolved]
  - Hepatocellular carcinoma [Unknown]
  - Diarrhoea [Recovered/Resolved]
  - Protein induced by vitamin K absence or antagonist II increased [Recovered/Resolved]
  - Alpha 1 foetoprotein increased [Recovered/Resolved]
  - Decreased appetite [Recovered/Resolved]
